FAERS Safety Report 11262926 (Version 2)
Quarter: 2015Q3

REPORT INFORMATION
  Report Type: Spontaneous
  Country: US (occurrence: US)
  Receive Date: 20150710
  Receipt Date: 20150716
  Transmission Date: 20151125
  Serious: Yes (Other)
  Sender: FDA-Public Use
  Company Number: US-BAXTER-2015BAX035647

PATIENT
  Age: 67 Year
  Sex: Male

DRUGS (3)
  1. MANNITOL. [Suspect]
     Active Substance: MANNITOL
     Indication: PRODUCT USED FOR UNKNOWN INDICATION
     Route: 065
  2. MANNITOL. [Suspect]
     Active Substance: MANNITOL
     Route: 041
  3. TISSEEL VH [Suspect]
     Active Substance: FIBRINOGEN HUMAN\THROMBIN HUMAN
     Indication: HAEMOSTASIS
     Route: 065

REACTIONS (3)
  - Ureteric obstruction [Recovered/Resolved]
  - Renal failure [Recovered/Resolved]
  - Anuria [Recovered/Resolved]
